FAERS Safety Report 21989684 (Version 1)
Quarter: 2023Q1

REPORT INFORMATION
  Report Type: Spontaneous
  Country: NG (occurrence: NG)
  Receive Date: 20230214
  Receipt Date: 20230214
  Transmission Date: 20230417
  Serious: Yes (Hospitalization, Other)
  Sender: FDA-Public Use
  Company Number: NG-PFIZER INC-202300063756

PATIENT
  Sex: Male
  Weight: 1.35 kg

DRUGS (1)
  1. MEROPENEM [Suspect]
     Active Substance: MEROPENEM
     Indication: Sepsis
     Dosage: UNK

REACTIONS (5)
  - Jaundice neonatal [Unknown]
  - Faeces pale [Unknown]
  - Transaminases abnormal [Unknown]
  - Cholecystitis [Unknown]
  - Off label use [Unknown]
